FAERS Safety Report 12463340 (Version 2)
Quarter: 2016Q2

REPORT INFORMATION
  Report Type: Spontaneous
  Country: US (occurrence: US)
  Receive Date: 20160614
  Receipt Date: 20160614
  Transmission Date: 20160815
  Serious: Yes (Hospitalization, Disabling, Other)
  Sender: FDA-Public Use
  Company Number: US-ABBVIE-16K-163-1646656-00

PATIENT
  Sex: Male
  Weight: 86.26 kg

DRUGS (4)
  1. HUMIRA [Suspect]
     Active Substance: ADALIMUMAB
     Route: 058
     Dates: start: 2012, end: 201511
  2. HUMIRA [Suspect]
     Active Substance: ADALIMUMAB
     Indication: CROHN^S DISEASE
     Route: 058
     Dates: start: 2010, end: 2012
  3. LOMOTIL [Concomitant]
     Active Substance: ATROPINE SULFATE\DIPHENOXYLATE HYDROCHLORIDE
     Indication: CROHN^S DISEASE
  4. CITALOPRAM [Interacting]
     Active Substance: CITALOPRAM HYDROBROMIDE
     Indication: DEPRESSION
     Route: 065
     Dates: end: 2016

REACTIONS (17)
  - Depression [Recovered/Resolved]
  - Postoperative abscess [Recovered/Resolved]
  - Crohn^s disease [Recovered/Resolved]
  - Enterococcal infection [Not Recovered/Not Resolved]
  - Cellulitis [Recovered/Resolved]
  - Muscle atrophy [Recovering/Resolving]
  - Stress [Unknown]
  - Bedridden [Recovered/Resolved]
  - Urinary tract infection [Recovering/Resolving]
  - Drug interaction [Recovered/Resolved]
  - Drug effect decreased [Unknown]
  - Weight decreased [Recovering/Resolving]
  - Intestinal ulcer [Recovered/Resolved]
  - Intestinal fistula [Recovered/Resolved]
  - Gastrointestinal anastomotic leak [Recovered/Resolved]
  - Drug ineffective [Not Recovered/Not Resolved]
  - Intestinal fistula [Not Recovered/Not Resolved]

NARRATIVE: CASE EVENT DATE: 2015
